FAERS Safety Report 7380182-2 (Version None)
Quarter: 2011Q1

REPORT INFORMATION
  Report Type: 
  Country: None (occurrence: None)
  Receive Date: 20110329
  Receipt Date: 20101119
  Transmission Date: 20110831
  Serious: No
  Sender: FDA-Public Use
  Company Number: US-MYLANLABS-2010S1019589

PATIENT
  Age: 74 Year
  Sex: Female

DRUGS (7)
  1. ESTRADIOL [Suspect]
     Indication: HORMONE REPLACEMENT THERAPY
     Dosage: CHANGED QW
     Route: 062
  2. VITAMIN B [Concomitant]
  3. DULCOLAX [Concomitant]
  4. OMEPRAZOLE [Concomitant]
     Route: 048
  5. XALATAN [Concomitant]
  6. PROZAC [Concomitant]
  7. VITAMIN D [Concomitant]
     Indication: GLAUCOMA

REACTIONS (3)
  - APPLICATION SITE PRURITUS [None]
  - APPLICATION SITE ERYTHEMA [None]
  - APPLICATION SITE RASH [None]
